FAERS Safety Report 25599798 (Version 1)
Quarter: 2025Q3

REPORT INFORMATION
  Report Type: Spontaneous
  Country: US (occurrence: US)
  Receive Date: 20250724
  Receipt Date: 20250724
  Transmission Date: 20251021
  Serious: Yes (Death, Hospitalization, Other)
  Sender: SAMSUNG BIOEPIS
  Company Number: US-SAMSUNG BIOEPIS-SB-2025-24773

PATIENT
  Age: 36 Year
  Sex: Female

DRUGS (2)
  1. INFLIXIMAB [Suspect]
     Active Substance: INFLIXIMAB
     Indication: Rheumatoid arthritis
  2. METHOTREXATE [Suspect]
     Active Substance: METHOTREXATE
     Indication: Rheumatoid arthritis

REACTIONS (7)
  - Acute respiratory distress syndrome [Fatal]
  - Acute kidney injury [Recovered/Resolved]
  - Fungal infection [Unknown]
  - Lung infiltration [Unknown]
  - Pneumocystis jirovecii pneumonia [Unknown]
  - Psychotic disorder [Unknown]
  - Anxiety [Unknown]
